FAERS Safety Report 7755555-6 (Version None)
Quarter: 2011Q3

REPORT INFORMATION
  Report Type: 
  Country: None (occurrence: None)
  Receive Date: 20110915
  Receipt Date: 20110915
  Transmission Date: 20111222
  Serious: Yes (Hospitalization)
  Sender: FDA-Public Use
  Company Number: None

PATIENT
  Sex: Female
  Weight: 64.8644 kg

DRUGS (1)
  1. REVATIO [Suspect]
     Indication: PULMONARY HYPERTENSION
     Dosage: 20 MG TID ORAL
     Route: 048
     Dates: start: 20110815

REACTIONS (3)
  - GENERALISED OEDEMA [None]
  - HEART VALVE REPLACEMENT [None]
  - PERICARDIAL EFFUSION [None]
